FAERS Safety Report 24166887 (Version 1)
Quarter: 2024Q3

REPORT INFORMATION
  Report Type: Spontaneous
  Country: CN (occurrence: CN)
  Receive Date: 20240802
  Receipt Date: 20240802
  Transmission Date: 20241016
  Serious: Yes (Life-Threatening, Hospitalization, Other)
  Sender: MELINTA THERAPEUTICS
  Company Number: CN-AstraZeneca-2024A168991

PATIENT

DRUGS (2)
  1. METOPROLOL SUCCINATE [Suspect]
     Active Substance: METOPROLOL SUCCINATE
     Indication: Coronary artery disease
     Route: 048
     Dates: start: 20240717, end: 20240717
  2. TICAGRELOR [Suspect]
     Active Substance: TICAGRELOR
     Indication: Coronary artery disease
     Dosage: 90 MILLIGRAM, BID
     Route: 048
     Dates: start: 20240717, end: 20240718

REACTIONS (2)
  - Atrioventricular block complete [Recovering/Resolving]
  - Atrioventricular block second degree [Unknown]

NARRATIVE: CASE EVENT DATE: 20240717
